FAERS Safety Report 4745056-1 (Version None)
Quarter: 2005Q3

REPORT INFORMATION
  Report Type: 
  Country: None (occurrence: None)
  Receive Date: 20050811
  Receipt Date: 20050729
  Transmission Date: 20060218
  Serious: Yes (Other)
  Sender: FDA-Public Use
  Company Number: 2003-06-3319

PATIENT
  Age: 27 Year
  Sex: Female
  Weight: 94.3482 kg

DRUGS (7)
  1. CLARITIN-D [Suspect]
     Dosage: ORAL
     Route: 048
  2. TRIMOX [Concomitant]
  3. AMOXICILLIN [Concomitant]
  4. DECONGESTANT (NOS) [Concomitant]
  5. IBUPROFEN [Concomitant]
  6. EXCEDRIN (MIGRAINE) [Concomitant]
  7. AZITHROMYCIN [Concomitant]

REACTIONS (11)
  - ACUTE MYOCARDIAL INFARCTION [None]
  - ASTHENIA [None]
  - CARDIAC DISORDER [None]
  - CORONARY ARTERY INSUFFICIENCY [None]
  - DIZZINESS [None]
  - DRUG SCREEN POSITIVE [None]
  - DYSPNOEA [None]
  - FATIGUE [None]
  - HYPERLIPIDAEMIA [None]
  - PAIN [None]
  - TEMPERATURE INTOLERANCE [None]
